FAERS Safety Report 11257995 (Version 1)
Quarter: 2015Q3

REPORT INFORMATION
  Report Type: Spontaneous
  Country: US (occurrence: None)
  Receive Date: 20150708
  Receipt Date: 20150708
  Transmission Date: 20151125
  Serious: Yes (Hospitalization)
  Sender: FDA-Public Use
  Company Number: US-H14001-15-01033

PATIENT
  Age: 61 Year
  Sex: Female

DRUGS (2)
  1. PREDNISONE. [Concomitant]
     Active Substance: PREDNISONE
  2. CEPHALEXIN. [Suspect]
     Active Substance: CEPHALEXIN
     Indication: BRONCHITIS

REACTIONS (13)
  - Pyrexia [None]
  - Rash maculo-papular [None]
  - Chromaturia [None]
  - Coombs direct test positive [None]
  - Flank pain [None]
  - Haptoglobin increased [None]
  - Dyspnoea [None]
  - Haemoglobin decreased [None]
  - Renal impairment [None]
  - Pigment nephropathy [None]
  - Blood lactate dehydrogenase increased [None]
  - Rash [None]
  - Haemolytic anaemia [None]
